FAERS Safety Report 12245873 (Version 1)
Quarter: 2016Q2

REPORT INFORMATION
  Report Type: Spontaneous
  Country: DE (occurrence: DE)
  Receive Date: 20160407
  Receipt Date: 20160407
  Transmission Date: 20160815
  Serious: Yes (Disabling, Other)
  Sender: FDA-Public Use
  Company Number: DE-NOVOPROD-486216

PATIENT
  Age: 13 Year
  Sex: Male

DRUGS (2)
  1. NORDITROPIN [Suspect]
     Active Substance: SOMATROPIN
     Indication: DWARFISM
     Dosage: 15 MG
     Route: 058
     Dates: start: 2013, end: 2016
  2. NORDITROPIN [Suspect]
     Active Substance: SOMATROPIN
     Indication: FOETAL ALCOHOL SYNDROME

REACTIONS (2)
  - Off label use [Unknown]
  - Osteochondrosis [Unknown]

NARRATIVE: CASE EVENT DATE: 2013
